FAERS Safety Report 19167319 (Version 1)
Quarter: 2021Q2

REPORT INFORMATION
  Report Type: Spontaneous
  Country: US (occurrence: US)
  Receive Date: 20210420
  Receipt Date: 20210420
  Transmission Date: 20210717
  Serious: No
  Sender: FDA-Public Use
  Company Number: None

PATIENT
  Age: 71 Year
  Sex: Male

DRUGS (2)
  1. ALLERGENIC EXTRACT (ALLERGENIC EXTRACT, MIXED ANTIGENS PATCH [Suspect]
     Active Substance: ALLERGEN PATCH TEST
     Indication: HYPERSENSITIVITY
     Dosage: ?          OTHER DOSE:1;?
     Route: 061
     Dates: start: 20210226, end: 20210303
  2. LISINOPRIL. [Suspect]
     Active Substance: LISINOPRIL
     Route: 048
     Dates: start: 20041228, end: 20210305

REACTIONS (8)
  - Pruritus [None]
  - Urticaria [None]
  - Application site pruritus [None]
  - Eosinophilia [None]
  - Type I hypersensitivity [None]
  - Application site rash [None]
  - Angioedema [None]
  - Application site papules [None]

NARRATIVE: CASE EVENT DATE: 20210303
